FAERS Safety Report 8393432-0 (Version None)
Quarter: 2012Q2

REPORT INFORMATION
  Report Type: 
  Country: None (occurrence: None)
  Receive Date: 20120529
  Receipt Date: 20120522
  Transmission Date: 20120825
  Serious: No
  Sender: FDA-Public Use
  Company Number: US-BAYER-2012-051380

PATIENT
  Age: 73 Year
  Sex: Female
  Weight: 86 kg

DRUGS (6)
  1. ALLOPURINOL [Concomitant]
  2. EFFEXOR [Concomitant]
  3. VITAMIN D [Concomitant]
  4. ALEVE (CAPLET) [Suspect]
     Indication: ARTHRITIS
     Dosage: 1 DF, PRN
     Route: 048
     Dates: start: 20111103
  5. ALEVE (CAPLET) [Suspect]
     Dosage: 1 DF, PRN
     Route: 048
     Dates: start: 19940101, end: 19940101
  6. PREVACID [Concomitant]

REACTIONS (1)
  - PAIN [None]
